FAERS Safety Report 14538395 (Version 3)
Quarter: 2018Q1

REPORT INFORMATION
  Report Type: Spontaneous
  Country: US (occurrence: US)
  Receive Date: 20180216
  Receipt Date: 20180320
  Transmission Date: 20180509
  Serious: No
  Sender: FDA-Public Use
  Company Number: US-CELGENEUS-USA-20180204109

PATIENT
  Age: 58 Year
  Sex: Female

DRUGS (8)
  1. METHOTREXATE. [Concomitant]
     Active Substance: METHOTREXATE
     Indication: PSORIATIC ARTHROPATHY
     Dosage: 15 MILLIGRAM
     Route: 048
     Dates: start: 20170325
  2. OTEZLA [Suspect]
     Active Substance: APREMILAST
     Dosage: 60 MILLIGRAM
     Route: 048
     Dates: start: 2018, end: 20180211
  3. ETODOLAC ER [Concomitant]
     Active Substance: ETODOLAC
     Indication: PSORIATIC ARTHROPATHY
     Dosage: 400 MILLIGRAM
     Route: 048
     Dates: start: 2016
  4. FOLIC ACID. [Concomitant]
     Active Substance: FOLIC ACID
     Indication: PSORIATIC ARTHROPATHY
     Dosage: 1 MILLIGRAM
     Route: 048
     Dates: start: 20170325
  5. OTEZLA [Suspect]
     Active Substance: APREMILAST
     Indication: PSORIATIC ARTHROPATHY
     Dosage: STARTER PACK
     Route: 048
     Dates: start: 20180125
  6. OTEZLA [Suspect]
     Active Substance: APREMILAST
     Dosage: 30 MILLIGRAM
     Route: 048
     Dates: start: 20180214, end: 20180218
  7. OTEZLA [Suspect]
     Active Substance: APREMILAST
     Dosage: 60 MILLIGRAM
     Route: 048
     Dates: start: 20180219
  8. VITAMIN D3 [Concomitant]
     Active Substance: CHOLECALCIFEROL
     Indication: VITAMIN D DEFICIENCY
     Dosage: 2000 IU (INTERNATIONAL UNIT)
     Route: 048
     Dates: start: 2015

REACTIONS (8)
  - Nausea [Recovering/Resolving]
  - Dyspepsia [Recovered/Resolved]
  - Gastroenteritis viral [Recovered/Resolved]
  - Chills [Recovered/Resolved]
  - Headache [Recovering/Resolving]
  - Diarrhoea [Recovered/Resolved]
  - Vomiting [Recovered/Resolved]
  - Nasal congestion [Recovered/Resolved]

NARRATIVE: CASE EVENT DATE: 20180211
